FAERS Safety Report 4526689-4 (Version None)
Quarter: 2004Q4

REPORT INFORMATION
  Report Type: 
  Country: None (occurrence: None)
  Receive Date: 20041213
  Receipt Date: 20041203
  Transmission Date: 20050328
  Serious: Yes (Other)
  Sender: FDA-Public Use
  Company Number: 2004-11-0729

PATIENT
  Age: 54 Year
  Sex: Female
  Weight: 68.0396 kg

DRUGS (2)
  1. PEG-INTRON [Suspect]
     Indication: HEPATITIS C
     Dosage: 96-48 QWK SUBCUTANEOUS
     Route: 058
     Dates: start: 20021207, end: 20030520
  2. REBETOL [Suspect]
     Indication: HEPATITIS C
     Dosage: 1000-800 MG/D ORAL
     Route: 048
     Dates: start: 20021207, end: 20030520

REACTIONS (19)
  - ANAEMIA [None]
  - ANGER [None]
  - APHASIA [None]
  - BONE PAIN [None]
  - COGNITIVE DISORDER [None]
  - DEMENTIA [None]
  - DEPRESSION [None]
  - DRUG INTOLERANCE [None]
  - ELECTROENCEPHALOGRAM ABNORMAL [None]
  - HEADACHE [None]
  - LOSS OF CONSCIOUSNESS [None]
  - MEMORY IMPAIRMENT [None]
  - MENTAL IMPAIRMENT [None]
  - NEUTROPENIA [None]
  - PSYCHOTIC DISORDER [None]
  - REFUSAL OF TREATMENT BY PATIENT [None]
  - SUICIDAL IDEATION [None]
  - TEARFULNESS [None]
  - TOXIC INDUCED ENCEPHALOPATHY [None]
